FAERS Safety Report 9378302 (Version 2)
Quarter: 2013Q3

REPORT INFORMATION
  Report Type: Spontaneous
  Country: US (occurrence: US)
  Receive Date: 20130701
  Receipt Date: 20130724
  Transmission Date: 20140515
  Serious: Yes (Death)
  Sender: FDA-Public Use
  Company Number: US-GILEAD-2013-0078110

PATIENT
  Sex: Female

DRUGS (1)
  1. CAYSTON [Suspect]
     Indication: PSEUDOMONAS INFECTION
     Dosage: 75 MG, UNK
     Route: 055
     Dates: start: 20110114, end: 20110125

REACTIONS (6)
  - Rhinovirus infection [Fatal]
  - Cytomegalovirus viraemia [Fatal]
  - Pseudomonas infection [Fatal]
  - Staphylococcal infection [Fatal]
  - Enterococcal bacteraemia [Fatal]
  - Obliterative bronchiolitis [Fatal]
